FAERS Safety Report 7726087-6 (Version None)
Quarter: 2011Q3

REPORT INFORMATION
  Report Type: 
  Country: None (occurrence: None)
  Receive Date: 20110902
  Receipt Date: 20110830
  Transmission Date: 20111222
  Serious: Yes (Life-Threatening)
  Sender: FDA-Public Use
  Company Number: US-CEPHALON-2011004571

PATIENT
  Sex: Male

DRUGS (1)
  1. NUVIGIL [Suspect]
     Route: 048

REACTIONS (1)
  - ALLERGY TO ARTHROPOD STING [None]
